FAERS Safety Report 7022399-2 (Version None)
Quarter: 2010Q3

REPORT INFORMATION
  Report Type: 
  Country: None (occurrence: None)
  Receive Date: 20100930
  Receipt Date: 20100922
  Transmission Date: 20110219
  Serious: Yes (Other)
  Sender: FDA-Public Use
  Company Number: US-ROCHE-695676

PATIENT
  Sex: Female

DRUGS (2)
  1. PEGASYS [Suspect]
     Indication: HEPATITIS C
     Dosage: TRIAL TREATMENT, FORM:PREFILLED SYRINGE
     Route: 065
     Dates: start: 20100316, end: 20100330
  2. COPEGUS [Suspect]
     Indication: HEPATITIS C
     Dosage: FREQUENCY: DAILY IN DIVIDED DOSES
     Route: 065
     Dates: start: 20100316, end: 20100330

REACTIONS (13)
  - ABDOMINAL DISTENSION [None]
  - ABDOMINAL PAIN [None]
  - ANXIETY [None]
  - BLISTER [None]
  - CONTUSION [None]
  - DIARRHOEA [None]
  - EYE DISORDER [None]
  - HEADACHE [None]
  - NAUSEA [None]
  - SKIN REACTION [None]
  - STOMATITIS [None]
  - SUNBURN [None]
  - VULVOVAGINAL BURNING SENSATION [None]
